FAERS Safety Report 13045450 (Version 1)
Quarter: 2016Q4

REPORT INFORMATION
  Report Type: Spontaneous
  Country: US (occurrence: US)
  Receive Date: 20161220
  Receipt Date: 20161220
  Transmission Date: 20170207
  Serious: Yes (Disabling)
  Sender: FDA-Public Use
  Company Number: None

PATIENT
  Age: 51 Year
  Sex: Male
  Weight: 83.92 kg

DRUGS (10)
  1. METOPROLOL SUCCINATE. [Concomitant]
     Active Substance: METOPROLOL SUCCINATE
  2. ATORVASTATIN [Concomitant]
     Active Substance: ATORVASTATIN
  3. JANUMET [Concomitant]
     Active Substance: METFORMIN HYDROCHLORIDE\SITAGLIPTIN PHOSPHATE
  4. INVOKANA [Suspect]
     Active Substance: CANAGLIFLOZIN
     Indication: DIABETES MELLITUS
     Dosage: 1 PILL DAILY IN THE MORNING
     Route: 048
     Dates: start: 201503, end: 201506
  5. ACARBOSE. [Concomitant]
     Active Substance: ACARBOSE
  6. DIABETIC SUPPORT FORMULA [Concomitant]
  7. COQ10 [Concomitant]
     Active Substance: UBIDECARENONE
  8. AMLODIPINE BESYLATE. [Concomitant]
     Active Substance: AMLODIPINE BESYLATE
  9. GLIMEPIRIDE. [Concomitant]
     Active Substance: GLIMEPIRIDE
  10. CAREFOLIN NAC [Concomitant]

REACTIONS (3)
  - Mental disorder [None]
  - Disturbance in attention [None]
  - Impaired work ability [None]

NARRATIVE: CASE EVENT DATE: 201506
